FAERS Safety Report 7755733-6 (Version None)
Quarter: 2011Q3

REPORT INFORMATION
  Report Type: 
  Country: None (occurrence: None)
  Receive Date: 20110916
  Receipt Date: 20110909
  Transmission Date: 20111222
  Serious: Yes (Other)
  Sender: FDA-Public Use
  Company Number: PHHY2011CA81048

PATIENT
  Sex: Male

DRUGS (1)
  1. SANDOSTATIN LAR [Suspect]
     Indication: ACROMEGALY
     Dosage: 30 MG EVERY THREE WEEKS
     Route: 030
     Dates: start: 20070807

REACTIONS (2)
  - HYPOTENSION [None]
  - HEART VALVE INCOMPETENCE [None]
